FAERS Safety Report 4938146-1 (Version None)
Quarter: 2006Q1

REPORT INFORMATION
  Report Type: 
  Country: None (occurrence: None)
  Receive Date: 20060309
  Receipt Date: 20051019
  Transmission Date: 20060701
  Serious: Yes (Hospitalization, Disabling)
  Sender: FDA-Public Use
  Company Number: US-MERCK-0510USA08319

PATIENT
  Age: 64 Year
  Sex: Female
  Weight: 73 kg

DRUGS (5)
  1. VIOXX [Suspect]
     Indication: PAIN
     Route: 048
     Dates: start: 20000901, end: 20040901
  2. VIOXX [Suspect]
     Route: 048
     Dates: start: 20000901, end: 20040901
  3. NORVASC [Concomitant]
     Indication: BLOOD PRESSURE
     Route: 065
     Dates: start: 20000613, end: 20041126
  4. ASPIRIN [Concomitant]
     Route: 065
     Dates: start: 20020427
  5. NEURONTIN [Concomitant]
     Route: 065
     Dates: start: 20040225

REACTIONS (8)
  - ARTERIOVENOUS FISTULA [None]
  - ARTERIOVENOUS MALFORMATION [None]
  - CENTRAL LINE INFECTION [None]
  - CEREBROVASCULAR ACCIDENT [None]
  - COORDINATION ABNORMAL [None]
  - DRUG HYPERSENSITIVITY [None]
  - RENAL FAILURE [None]
  - VASCULAR GRAFT OCCLUSION [None]
